FAERS Safety Report 17021265 (Version 4)
Quarter: 2019Q4

REPORT INFORMATION
  Report Type: Spontaneous
  Country: US (occurrence: US)
  Receive Date: 20191112
  Receipt Date: 20191217
  Transmission Date: 20200122
  Serious: Yes (Life-Threatening, Hospitalization)
  Sender: FDA-Public Use
  Company Number: US-PFIZER INC-2019484652

PATIENT
  Age: 75 Year
  Sex: Female
  Weight: 79 kg

DRUGS (2)
  1. HEPARIN SODIUM. [Suspect]
     Active Substance: HEPARIN SODIUM
     Dosage: 25,000 UNITS (HEPARIN SODIUM) IN 250 ML (DEXTROSE) TITRATED DRIP PER PROTOCOL
     Route: 041
  2. HEPARIN SODIUM. [Suspect]
     Active Substance: HEPARIN SODIUM
     Indication: DEEP VEIN THROMBOSIS
     Dosage: 25,000 UNITS (HEPARIN SODIUM) IN 250 ML (DEXTROSE) TITRATED DRIP PER PROTOCOL
     Route: 041

REACTIONS (2)
  - Activated partial thromboplastin time prolonged [Unknown]
  - Drug level above therapeutic [Recovered/Resolved]

NARRATIVE: CASE EVENT DATE: 20191101
